FAERS Safety Report 16469707 (Version 1)
Quarter: 2019Q2

REPORT INFORMATION
  Report Type: Spontaneous
  Country: US (occurrence: US)
  Receive Date: 20190514
  Receipt Date: 20190514
  Transmission Date: 20190711
  Serious: No
  Sender: FDA-Public Use
  Company Number: None

PATIENT
  Age: 55 Year
  Sex: Female

DRUGS (1)
  1. ENBREL [Suspect]
     Active Substance: ETANERCEPT
     Indication: RHEUMATOID ARTHRITIS
     Dates: start: 201904, end: 20190509

REACTIONS (6)
  - Bronchitis [None]
  - Acute respiratory failure [None]
  - Therapy cessation [None]
  - Condition aggravated [None]
  - Hypercapnia [None]
  - Seasonal allergy [None]

NARRATIVE: CASE EVENT DATE: 20190514
